FAERS Safety Report 25422087 (Version 1)
Quarter: 2025Q2

REPORT INFORMATION
  Report Type: Spontaneous
  Country: CN (occurrence: CN)
  Receive Date: 20250611
  Receipt Date: 20250611
  Transmission Date: 20250717
  Serious: Yes (Hospitalization)
  Sender: MERCK SHARP & DOHME LLC
  Company Number: CN-BAYER-2025A075699

PATIENT
  Age: 62 Year
  Sex: Male
  Weight: 60 kg

DRUGS (4)
  1. VERQUVO [Suspect]
     Active Substance: VERICIGUAT
     Indication: Cardiac failure congestive
     Dosage: 2.5 MG, QD
     Route: 048
     Dates: start: 20250320, end: 20250522
  2. CLOPIDOGREL BISULFATE [Suspect]
     Active Substance: CLOPIDOGREL BISULFATE
     Indication: Cardiac failure congestive
     Dosage: 50 MG, QD
     Route: 048
     Dates: start: 20250320, end: 20250522
  3. ACETAMINOPHEN\CAFFEINE [Suspect]
     Active Substance: ACETAMINOPHEN\CAFFEINE
     Indication: Abdominal pain
     Dosage: 2 DF, QD
     Route: 048
     Dates: start: 20250522, end: 20250522
  4. ATORVASTATIN CALCIUM [Concomitant]
     Active Substance: ATORVASTATIN CALCIUM
     Indication: Coronary artery disease
     Dosage: 10 MG, QD
     Route: 048
     Dates: start: 20250320, end: 20250522

REACTIONS (7)
  - Gastrointestinal ulcer haemorrhage [Recovering/Resolving]
  - Asthenia [Recovering/Resolving]
  - Dizziness [Recovering/Resolving]
  - Abdominal pain [Unknown]
  - Melaena [Recovered/Resolved]
  - Haematemesis [Recovered/Resolved]
  - Haemoglobin decreased [Unknown]

NARRATIVE: CASE EVENT DATE: 20250522
